FAERS Safety Report 9696718 (Version 1)
Quarter: 2013Q4

REPORT INFORMATION
  Report Type: Spontaneous
  Country: US (occurrence: US)
  Receive Date: 20131119
  Receipt Date: 20131119
  Transmission Date: 20140711
  Serious: No
  Sender: FDA-Public Use
  Company Number: US-GILEAD-2007-0014133

PATIENT
  Sex: Male
  Weight: 154.22 kg

DRUGS (15)
  1. LETAIRIS [Suspect]
     Indication: PULMONARY ARTERIAL HYPERTENSION
     Route: 048
     Dates: end: 2007
  2. COUMADIN [Concomitant]
     Route: 048
  3. TYLENOL [Concomitant]
     Indication: HEADACHE
     Route: 048
  4. VITAMIN C [Concomitant]
     Route: 048
  5. FLOLAN [Concomitant]
     Indication: PULMONARY ARTERIAL HYPERTENSION
     Dosage: CONTINUOUS
     Route: 042
     Dates: start: 200311
  6. IMODIUM [Concomitant]
     Route: 048
  7. FERROUS SULFATE [Concomitant]
     Route: 048
  8. OXYGEN [Concomitant]
     Dosage: CONTINUOUS
     Route: 045
  9. ALDACTONE [Concomitant]
     Dosage: EVERY OTHER DAY
     Route: 048
  10. POTASSIUM CHLORIDE [Concomitant]
     Route: 048
  11. FUROSEMIDE [Concomitant]
     Route: 048
  12. CLARINEX [Concomitant]
     Route: 048
  13. LEVOTHYROXINE [Concomitant]
     Route: 048
  14. MAGNESIUM OXIDE [Concomitant]
     Route: 048
  15. DILTIAZEM [Concomitant]
     Route: 048

REACTIONS (1)
  - Migraine [Unknown]
